FAERS Safety Report 5323938-X (Version None)
Quarter: 2007Q2

REPORT INFORMATION
  Report Type: 
  Country: None (occurrence: None)
  Receive Date: 20070514
  Receipt Date: 20070508
  Transmission Date: 20071010
  Serious: Yes (Hospitalization, Other)
  Sender: FDA-Public Use
  Company Number: GB-GENENTECH-239758

PATIENT
  Sex: Female
  Weight: 56.8 kg

DRUGS (9)
  1. RITUXIMAB [Suspect]
     Indication: VASCULITIS
     Dosage: 562 MG, 1/WEEK
     Route: 042
     Dates: start: 20070308
  2. CYCLOPHOSPHAMIDE [Concomitant]
     Indication: VASCULITIS
     Dosage: 570 MG, UNK
     Route: 042
  3. METHYLPREDNISOLONE 16MG TAB [Concomitant]
     Indication: VASCULITIS
     Dosage: 500 MG, UNK
     Route: 042
  4. ADCAL-D3 [Concomitant]
     Indication: DRUG USE FOR UNKNOWN INDICATION
     Dosage: UNK, QDX2
  5. AMPHOTERICIN B LOZENGES [Concomitant]
     Indication: DRUG USE FOR UNKNOWN INDICATION
     Dosage: UNK, QD
  6. DIGOXIN [Concomitant]
     Indication: DRUG USE FOR UNKNOWN INDICATION
     Dosage: 1.25 A?G, QD
  7. FUROSEMIDE [Concomitant]
     Indication: DRUG USE FOR UNKNOWN INDICATION
     Dosage: 40 MG, QD
  8. LANSOPRAZOLE [Concomitant]
     Indication: DRUG USE FOR UNKNOWN INDICATION
     Dosage: 30 MG, QD
  9. PREDNISOLONE [Concomitant]
     Indication: DRUG USE FOR UNKNOWN INDICATION
     Dosage: 20 MG, QD

REACTIONS (1)
  - CYTOMEGALOVIRUS INFECTION [None]
